FAERS Safety Report 5945878-5 (Version None)
Quarter: 2008Q4

REPORT INFORMATION
  Report Type: 
  Country: None (occurrence: None)
  Receive Date: 20081106
  Receipt Date: 20081028
  Transmission Date: 20090506
  Serious: Yes (Hospitalization)
  Sender: FDA-Public Use
  Company Number: 2008BI026917

PATIENT
  Age: 46 Year
  Sex: Female

DRUGS (5)
  1. TYSABRI [Suspect]
     Indication: MULTIPLE SCLEROSIS
     Dosage: 300 MG;QM;IV
     Route: 042
     Dates: start: 20080813, end: 20080911
  2. AVONEX [Concomitant]
  3. REBIF [Concomitant]
  4. . [Concomitant]
  5. ENDOXAN [Concomitant]

REACTIONS (11)
  - ABDOMINAL PAIN [None]
  - ASTHENIA [None]
  - COUGH [None]
  - DIARRHOEA [None]
  - EOSINOPHILIA [None]
  - LEUKAEMIA [None]
  - LEUKOCYTOSIS [None]
  - NASOPHARYNGITIS [None]
  - PYREXIA [None]
  - RHINITIS [None]
  - WEIGHT DECREASED [None]
